FAERS Safety Report 5258240-8 (Version None)
Quarter: 2007Q1

REPORT INFORMATION
  Report Type: 
  Country: None (occurrence: None)
  Receive Date: 20070302
  Receipt Date: 20070216
  Transmission Date: 20070707
  Serious: Yes (Death, Other)
  Sender: FDA-Public Use
  Company Number: S07-UKI-00364-01

PATIENT
  Age: 28 Year
  Sex: Female
  Weight: 159 kg

DRUGS (9)
  1. CITALOPRAM HYDROBROMIDE [Suspect]
     Indication: DEPRESSION
     Dosage: 30 MG QD PO
     Route: 048
  2. CLOZARIL [Suspect]
     Indication: SCHIZOPHRENIA
     Dosage: 400 MG QD PO
     Route: 048
  3. HALOPERIDOL [Suspect]
     Indication: DEPRESSION
     Dosage: 5 MG BID PO
     Route: 048
  4. LITHIUM CARBONATE [Suspect]
     Indication: DEPRESSION
     Dosage: 900 MG QD PO
     Route: 048
  5. DIAZEPAM [Concomitant]
  6. LACTULOSE [Concomitant]
  7. LEVOTHYROXINE SODIUM [Concomitant]
  8. PIRENZAPINE [Concomitant]
  9. SENNA [Concomitant]

REACTIONS (5)
  - CYANOSIS [None]
  - MYOCARDIAL INFARCTION [None]
  - NEUTROPHIL COUNT INCREASED [None]
  - VENTRICULAR HYPERTROPHY [None]
  - WHITE BLOOD CELL COUNT INCREASED [None]
